FAERS Safety Report 11312116 (Version 1)
Quarter: 2015Q3

REPORT INFORMATION
  Report Type: Spontaneous
  Country: FR (occurrence: FR)
  Receive Date: 20150727
  Receipt Date: 20150727
  Transmission Date: 20151125
  Serious: Yes (Hospitalization)
  Sender: FDA-Public Use
  Company Number: FR-PFIZER INC-2015244235

PATIENT
  Age: 75 Year
  Sex: Female

DRUGS (7)
  1. XANAX [Suspect]
     Active Substance: ALPRAZOLAM
     Dosage: 0.5 MG, 3X/DAY
  2. ZYPREXA [Suspect]
     Active Substance: OLANZAPINE
     Dosage: 5 MG, DAILY
     Route: 048
     Dates: start: 2015
  3. STILNOX [Concomitant]
     Active Substance: ZOLPIDEM TARTRATE
     Dosage: 10 MG, UNK
  4. ZYPREXA [Suspect]
     Active Substance: OLANZAPINE
     Dosage: 7.5 MG, DAILY
     Route: 048
     Dates: end: 2015
  5. AVLOCARDYL [Concomitant]
     Active Substance: PROPRANOLOL HYDROCHLORIDE
     Dosage: 40 MG, 2X/DAY
  6. ANAFRANIL [Suspect]
     Active Substance: CLOMIPRAMINE HYDROCHLORIDE
     Dosage: 75 MG IN MORNINGS AND 25 MG IN MORNINGS AND EVENINGS
     Route: 048
  7. ATACAND [Concomitant]
     Active Substance: CANDESARTAN CILEXETIL
     Dosage: 16 MG, DAILY

REACTIONS (2)
  - Generalised tonic-clonic seizure [Recovered/Resolved]
  - Clonic convulsion [Recovered/Resolved]

NARRATIVE: CASE EVENT DATE: 20150506
